FAERS Safety Report 8957381 (Version 1)
Quarter: 2012Q4

REPORT INFORMATION
  Report Type: Report from Study
  Country: CA (occurrence: CA)
  Receive Date: 20121210
  Receipt Date: 20121210
  Transmission Date: 20130627
  Serious: Yes (Hospitalization, Other)
  Sender: FDA-Public Use
  Company Number: CA-ABBOTT-12P-028-0977146-00

PATIENT
  Sex: Female

DRUGS (3)
  1. HUMIRA [Suspect]
     Indication: RHEUMATOID ARTHRITIS
     Route: 058
     Dates: start: 20120525
  2. PREDNISONE [Suspect]
     Indication: RHEUMATOID ARTHRITIS
  3. METHOTREXATE [Suspect]
     Indication: RHEUMATOID ARTHRITIS

REACTIONS (5)
  - Pyrexia [Unknown]
  - Blister [Unknown]
  - Stevens-Johnson syndrome [Unknown]
  - Pain [Unknown]
  - Infection [Not Recovered/Not Resolved]
